FAERS Safety Report 5357703-4 (Version None)
Quarter: 2007Q2

REPORT INFORMATION
  Report Type: 
  Country: None (occurrence: None)
  Receive Date: 20070614
  Receipt Date: 20070611
  Transmission Date: 20071010
  Serious: Yes (Death)
  Sender: FDA-Public Use
  Company Number: FR-SANOFI-SYNTHELABO-F01200700569

PATIENT
  Sex: Male
  Weight: 72 kg

DRUGS (10)
  1. SIMVASTATIN [Concomitant]
  2. LEUCOVORIN CALCIUM [Suspect]
     Dosage: 730 MG
     Route: 041
     Dates: start: 20060518, end: 20060518
  3. IRINOTECAN HCL [Suspect]
     Dosage: 330 MG
     Route: 041
     Dates: start: 20060518, end: 20060518
  4. ZOFRAN [Concomitant]
     Dates: start: 20060518, end: 20060523
  5. OXALIPLATIN [Suspect]
     Indication: PANCREATIC CARCINOMA METASTATIC
     Dosage: 150 MG
     Route: 041
     Dates: start: 20060518, end: 20060518
  6. METFORMIN HCL [Concomitant]
  7. FLUOROURACIL [Suspect]
     Dosage: 730 MG BOLUS FOLLOWED BY 4400 MG INFUSION
     Route: 041
     Dates: start: 20060518, end: 20060519
  8. ATROPINE [Concomitant]
     Dates: start: 20060518, end: 20060518
  9. KARDEGIC [Concomitant]
  10. CELECTOL [Concomitant]

REACTIONS (1)
  - DEATH [None]
